FAERS Safety Report 12811751 (Version 1)
Quarter: 2016Q4

REPORT INFORMATION
  Report Type: Spontaneous
  Country: US (occurrence: US)
  Receive Date: 20161005
  Receipt Date: 20161005
  Transmission Date: 20170207
  Serious: No
  Sender: FDA-Public Use
  Company Number: US-AMGEN-USASP2016115409

PATIENT
  Age: 53 Year
  Sex: Female

DRUGS (1)
  1. PROLIA [Suspect]
     Active Substance: DENOSUMAB
     Indication: OSTEOPOROSIS
     Route: 065

REACTIONS (8)
  - Dysphagia [Unknown]
  - Weight increased [Unknown]
  - Insomnia [Unknown]
  - Dysphonia [Unknown]
  - Neck mass [Unknown]
  - Vomiting [Unknown]
  - Hair growth abnormal [Unknown]
  - Nail growth abnormal [Unknown]
